FAERS Safety Report 9069568 (Version 2)
Quarter: 2013Q1

REPORT INFORMATION
  Report Type: Report from Study
  Country: US (occurrence: US)
  Receive Date: 20130215
  Receipt Date: 20130219
  Transmission Date: 20140127
  Serious: Yes (Hospitalization)
  Sender: FDA-Public Use
  Company Number: US-ABBOTT-13P-163-1047763-00

PATIENT
  Sex: Female

DRUGS (5)
  1. HUMIRA [Suspect]
     Indication: RHEUMATOID ARTHRITIS
     Dates: start: 200707, end: 201206
  2. TRAMADOL [Suspect]
     Indication: PAIN
  3. ALEVE [Suspect]
     Indication: PRODUCT USED FOR UNKNOWN INDICATION
     Dates: end: 2008
  4. METHOTREXATE [Concomitant]
     Indication: RHEUMATOID ARTHRITIS
  5. HUMULIN INSULIN [Concomitant]
     Indication: TYPE 1 DIABETES MELLITUS

REACTIONS (14)
  - Haemolytic anaemia [Unknown]
  - Myocardial infarction [Recovered/Resolved]
  - Swelling [Not Recovered/Not Resolved]
  - Arthralgia [Not Recovered/Not Resolved]
  - Pain in extremity [Not Recovered/Not Resolved]
  - Musculoskeletal pain [Not Recovered/Not Resolved]
  - Periarthritis [Not Recovered/Not Resolved]
  - Fatigue [Not Recovered/Not Resolved]
  - Rheumatoid factor positive [Unknown]
  - C-reactive protein increased [Unknown]
  - Thyroid function test abnormal [Unknown]
  - Vomiting [Unknown]
  - Arthralgia [None]
  - Hypersomnia [None]
